FAERS Safety Report 5452788-9 (Version None)
Quarter: 2007Q3

REPORT INFORMATION
  Report Type: 
  Country: None (occurrence: None)
  Receive Date: 20070914
  Receipt Date: 20070831
  Transmission Date: 20080115
  Serious: Yes (Hospitalization)
  Sender: FDA-Public Use
  Company Number: ES-ELI_LILLY_AND_COMPANY-ES200709000057

PATIENT
  Age: 77 Year
  Sex: Female

DRUGS (5)
  1. PLASTERS [Concomitant]
  2. FORTEO [Suspect]
     Indication: OSTEOPOROSIS
     Dosage: 20 UNK, UNK
     Route: 058
     Dates: start: 20070801, end: 20070815
  3. LYRICA [Concomitant]
  4. RENAGEL [Concomitant]
  5. GELOCATIL [Concomitant]

REACTIONS (1)
  - POST PROCEDURAL INFECTION [None]
